FAERS Safety Report 8036611-4 (Version None)
Quarter: 2012Q1

REPORT INFORMATION
  Report Type: 
  Country: None (occurrence: None)
  Receive Date: 20120111
  Receipt Date: 20120106
  Transmission Date: 20120608
  Serious: Yes (Other)
  Sender: FDA-Public Use
  Company Number: PHEH2012US000835

PATIENT
  Sex: Female

DRUGS (5)
  1. LOTREL [Suspect]
     Dosage: 10/40 MG 2 DF, UNK
  2. ATENOLOL [Concomitant]
     Dosage: 50 MG 1 DF, UNK
  3. LIPITOR [Concomitant]
  4. ATENOLOL [Concomitant]
     Dosage: 25 MG 1 DF, UNK
  5. LOTREL [Suspect]
     Dosage: 10/40 MG 1 DF,(1/DAY)

REACTIONS (3)
  - SKIN EXFOLIATION [None]
  - DRUG ERUPTION [None]
  - SKIN BURNING SENSATION [None]
